FAERS Safety Report 13857219 (Version 1)
Quarter: 2017Q3

REPORT INFORMATION
  Report Type: Spontaneous
  Country: US (occurrence: US)
  Receive Date: 20170810
  Receipt Date: 20170810
  Transmission Date: 20171127
  Serious: No
  Sender: FDA-Public Use
  Company Number: US-ROCHE-1335100

PATIENT
  Sex: Male

DRUGS (4)
  1. TAMIFLU [Suspect]
     Active Substance: OSELTAMIVIR PHOSPHATE
     Indication: INFLUENZA
     Dosage: FOR 6 DAYS
     Route: 048
     Dates: start: 20140115
  2. TAMIFLU [Suspect]
     Active Substance: OSELTAMIVIR PHOSPHATE
     Dosage: POSSIBILITY DOSAGE
     Route: 048
  3. TAMIFLU [Suspect]
     Active Substance: OSELTAMIVIR PHOSPHATE
     Route: 048
     Dates: start: 20140115, end: 20140120
  4. GUAIFENESIN. [Concomitant]
     Active Substance: GUAIFENESIN
     Dosage: 1 TEASPOON FOUR TIMES A DAY
     Route: 048
     Dates: start: 20140115

REACTIONS (1)
  - Vomiting [Unknown]
